FAERS Safety Report 14955585 (Version 2)
Quarter: 2018Q2

REPORT INFORMATION
  Report Type: Spontaneous
  Country: US (occurrence: US)
  Receive Date: 20180531
  Receipt Date: 20180614
  Transmission Date: 20180711
  Serious: Yes (Hospitalization, Other)
  Sender: FDA-Public Use
  Company Number: US-APOTEX-2018AP015145

PATIENT
  Age: 45 Year
  Sex: Male

DRUGS (2)
  1. VALPROIC ACID. [Suspect]
     Active Substance: VALPROIC ACID
     Indication: PRODUCT USED FOR UNKNOWN INDICATION
     Dosage: 10 G, UNK
     Route: 048
  2. MEROPENEM. [Suspect]
     Active Substance: MEROPENEM
     Indication: PNEUMONIA
     Dosage: 500 MG, Q.6H
     Route: 042

REACTIONS (7)
  - Confusional state [Unknown]
  - Toxicity to various agents [Unknown]
  - Overdose [Unknown]
  - Unresponsive to stimuli [Unknown]
  - Pneumonia aspiration [Unknown]
  - Mental status changes [Recovered/Resolved]
  - Drug interaction [Unknown]
